FAERS Safety Report 23243518 (Version 1)
Quarter: 2023Q4

REPORT INFORMATION
  Report Type: Report from Study
  Country: DE (occurrence: ZA)
  Receive Date: 20231130
  Receipt Date: 20231130
  Transmission Date: 20240110
  Serious: Yes (Other)
  Sender: FDA-Public Use
  Company Number: DE-OTSUKA-2023_029216

PATIENT
  Sex: Male
  Weight: 55.8 kg

DRUGS (2)
  1. SIRTURO [Suspect]
     Active Substance: BEDAQUILINE FUMARATE
     Indication: Pulmonary tuberculosis
     Dosage: UNK
     Route: 065
  2. DELAMANID [Suspect]
     Active Substance: DELAMANID
     Indication: Pulmonary tuberculosis
     Dosage: 300 MG, QD
     Route: 048

REACTIONS (10)
  - Acute kidney injury [Unknown]
  - Gamma-glutamyltransferase increased [Unknown]
  - Epistaxis [Unknown]
  - Diarrhoea [Unknown]
  - Liver function test increased [Unknown]
  - Anaemia [Unknown]
  - Hypersomnia [Unknown]
  - Fatigue [Unknown]
  - Blood alkaline phosphatase increased [Unknown]
  - Weight decreased [Unknown]
